FAERS Safety Report 8273724-6 (Version None)
Quarter: 2012Q2

REPORT INFORMATION
  Report Type: 
  Country: None (occurrence: None)
  Receive Date: 20120411
  Receipt Date: 20120402
  Transmission Date: 20120825
  Serious: Yes (Hospitalization)
  Sender: FDA-Public Use
  Company Number: US-GENZYME-FABR-1002381

PATIENT
  Sex: Female

DRUGS (16)
  1. NITROGLYCERIN [Concomitant]
     Indication: PRODUCT USED FOR UNKNOWN INDICATION
     Dosage: 0.4 MG, QD
     Route: 062
  2. INDERAL [Concomitant]
     Indication: PRODUCT USED FOR UNKNOWN INDICATION
     Dosage: 120 MG, QD
     Route: 065
  3. FABRAZYME [Suspect]
     Indication: FABRY'S DISEASE
     Dosage: 60 MG, QOW
     Route: 042
     Dates: start: 20031208
  4. BENADRYL [Concomitant]
     Indication: PRODUCT USED FOR UNKNOWN INDICATION
     Dosage: 25 MG, QD
     Route: 048
  5. NITROLINGUAL [Concomitant]
     Indication: PRODUCT USED FOR UNKNOWN INDICATION
     Dosage: 0.4 MG, TID
     Route: 061
  6. IMDUR [Concomitant]
     Dosage: 30 MG, BID
     Route: 048
  7. ZANTAC [Concomitant]
     Indication: PRODUCT USED FOR UNKNOWN INDICATION
     Dosage: 300 MG, QD
     Route: 065
  8. SENOKOT [Concomitant]
     Indication: PRODUCT USED FOR UNKNOWN INDICATION
     Dosage: 1 TAB, QD
     Route: 048
  9. DIOVAN [Concomitant]
     Indication: PRODUCT USED FOR UNKNOWN INDICATION
     Dosage: 160 MG, QD
     Route: 065
  10. TEGRETOL [Concomitant]
     Indication: PRODUCT USED FOR UNKNOWN INDICATION
     Dosage: 200 MG, BID
     Route: 065
  11. ASPIRIN [Concomitant]
     Indication: PRODUCT USED FOR UNKNOWN INDICATION
     Dosage: 81 MG, QD
     Route: 048
  12. NITROGLYCERIN [Concomitant]
     Dosage: UNK
     Route: 061
  13. NORCO [Concomitant]
     Indication: PRODUCT USED FOR UNKNOWN INDICATION
     Dosage: 10/325 MG, QD
     Route: 048
  14. PROCARDIA [Concomitant]
     Indication: PRODUCT USED FOR UNKNOWN INDICATION
     Dosage: 30 MG, QD
     Route: 048
  15. PROCARDIA [Concomitant]
     Dosage: 30 MG, BID
     Route: 048
  16. IMDUR [Concomitant]
     Indication: PRODUCT USED FOR UNKNOWN INDICATION
     Dosage: 30 MG, QD
     Route: 048

REACTIONS (1)
  - ANGINA PECTORIS [None]
